FAERS Safety Report 6580229-7 (Version None)
Quarter: 2010Q1

REPORT INFORMATION
  Report Type: 
  Country: None (occurrence: None)
  Receive Date: 20100212
  Receipt Date: 20100209
  Transmission Date: 20100710
  Serious: Yes (Other)
  Sender: FDA-Public Use
  Company Number: US-BAYER-201012191NA

PATIENT
  Age: 54 Year
  Sex: Female

DRUGS (14)
  1. AVELOX [Suspect]
     Indication: SINUSITIS
     Dosage: 10 DAYS OF DOSE
     Route: 048
  2. DIFLUCAN [Concomitant]
     Dosage: TOTAL DAILY DOSE: 150 MG  UNIT DOSE: 150 MG
     Route: 048
  3. NASACORT AQ [Concomitant]
     Dosage: TOTAL DAILY DOSE: 110 ?G  UNIT DOSE: 55 ?G
     Route: 055
  4. LISINOPRIL HYDROCHLORTHIAZID [Concomitant]
     Dosage: 20-25 MG
  5. CLARITIN [Concomitant]
     Dosage: TOTAL DAILY DOSE: 10 MG  UNIT DOSE: 10 MG
     Route: 048
  6. PROTONIX [Concomitant]
     Dosage: TOTAL DAILY DOSE: 40 MG  UNIT DOSE: 40 MG
     Route: 048
  7. CLONIDINE HCL [Concomitant]
     Dosage: TOTAL DAILY DOSE: 0.2 MG  UNIT DOSE: 0.2 MG
  8. GLYBURIDE [Concomitant]
     Dosage: TOTAL DAILY DOSE: 10 MG  UNIT DOSE: 5 MG
     Route: 048
  9. JANUVIA [Concomitant]
     Dosage: TOTAL DAILY DOSE: 100 MG  UNIT DOSE: 100 MG
     Route: 048
  10. ZOCOR [Concomitant]
     Dosage: TOTAL DAILY DOSE: 40 MG  UNIT DOSE: 40 MG
     Route: 048
  11. GLUCOPHAGE XR [Concomitant]
     Dosage: UNIT DOSE: 500 MG
     Route: 048
  12. Q-PAP EXTRA STRENGTH [Concomitant]
     Dosage: TOTAL DAILY DOSE: 2000 MG  UNIT DOSE: 500 MG
     Route: 048
  13. MULTI-VITAMIN [Concomitant]
     Route: 048
  14. METFORMIN HCL [Concomitant]
     Dosage: UNIT DOSE: 500 MG
     Route: 048

REACTIONS (1)
  - HALLUCINATIONS, MIXED [None]
